FAERS Safety Report 7228973-2 (Version None)
Quarter: 2011Q1

REPORT INFORMATION
  Report Type: 
  Country: None (occurrence: None)
  Receive Date: 20110117
  Receipt Date: 20110112
  Transmission Date: 20110831
  Serious: Yes (Other)
  Sender: FDA-Public Use
  Company Number: US-AMGEN-USASP2011002222

PATIENT

DRUGS (1)
  1. ENBREL [Suspect]
     Indication: RHEUMATOID ARTHRITIS
     Dates: start: 20050405

REACTIONS (4)
  - FOOT DEFORMITY [None]
  - HYPERKERATOSIS [None]
  - KNEE ARTHROPLASTY [None]
  - LOCALISED INFECTION [None]
